FAERS Safety Report 16760476 (Version 3)
Quarter: 2025Q3

REPORT INFORMATION
  Report Type: Spontaneous
  Country: EU (occurrence: EU)
  Receive Date: 20190830
  Receipt Date: 20250829
  Transmission Date: 20251021
  Serious: Yes (Death, Hospitalization, Other)
  Sender: MYLAN
  Company Number: EU-SA-200712041GDDC

PATIENT
  Age: 11 Year
  Sex: Female

DRUGS (48)
  1. METHOTREXATE [Suspect]
     Active Substance: METHOTREXATE
     Indication: Acute lymphocytic leukaemia
  2. METHOTREXATE [Suspect]
     Active Substance: METHOTREXATE
     Route: 037
  3. METHOTREXATE [Suspect]
     Active Substance: METHOTREXATE
     Route: 037
  4. METHOTREXATE [Suspect]
     Active Substance: METHOTREXATE
  5. METHOTREXATE [Suspect]
     Active Substance: METHOTREXATE
     Indication: Acute lymphocytic leukaemia
  6. METHOTREXATE [Suspect]
     Active Substance: METHOTREXATE
     Route: 042
  7. METHOTREXATE [Suspect]
     Active Substance: METHOTREXATE
     Route: 042
  8. METHOTREXATE [Suspect]
     Active Substance: METHOTREXATE
  9. VINCRISTINE SULFATE [Suspect]
     Active Substance: VINCRISTINE SULFATE
     Indication: Acute lymphocytic leukaemia
  10. VINCRISTINE SULFATE [Suspect]
     Active Substance: VINCRISTINE SULFATE
     Route: 065
  11. VINCRISTINE SULFATE [Suspect]
     Active Substance: VINCRISTINE SULFATE
     Route: 065
  12. VINCRISTINE SULFATE [Suspect]
     Active Substance: VINCRISTINE SULFATE
  13. CYCLOPHOSPHAMIDE [Suspect]
     Active Substance: CYCLOPHOSPHAMIDE
     Indication: Acute lymphocytic leukaemia
  14. CYCLOPHOSPHAMIDE [Suspect]
     Active Substance: CYCLOPHOSPHAMIDE
     Route: 065
  15. CYCLOPHOSPHAMIDE [Suspect]
     Active Substance: CYCLOPHOSPHAMIDE
     Route: 065
  16. CYCLOPHOSPHAMIDE [Suspect]
     Active Substance: CYCLOPHOSPHAMIDE
  17. PREDNISONE [Suspect]
     Active Substance: PREDNISONE
     Indication: Acute lymphocytic leukaemia
  18. PREDNISONE [Suspect]
     Active Substance: PREDNISONE
     Route: 065
  19. PREDNISONE [Suspect]
     Active Substance: PREDNISONE
     Route: 065
  20. PREDNISONE [Suspect]
     Active Substance: PREDNISONE
  21. MERCAPTOPURINE [Suspect]
     Active Substance: MERCAPTOPURINE
     Indication: Acute lymphocytic leukaemia
  22. MERCAPTOPURINE [Suspect]
     Active Substance: MERCAPTOPURINE
     Route: 065
  23. MERCAPTOPURINE [Suspect]
     Active Substance: MERCAPTOPURINE
     Route: 065
  24. MERCAPTOPURINE [Suspect]
     Active Substance: MERCAPTOPURINE
  25. DOXORUBICIN [Suspect]
     Active Substance: DOXORUBICIN
     Indication: Acute lymphocytic leukaemia
  26. DOXORUBICIN [Suspect]
     Active Substance: DOXORUBICIN
     Route: 065
  27. DOXORUBICIN [Suspect]
     Active Substance: DOXORUBICIN
     Route: 065
  28. DOXORUBICIN [Suspect]
     Active Substance: DOXORUBICIN
  29. CORTISONE [Suspect]
     Active Substance: CORTISONE
     Indication: Acute lymphocytic leukaemia
  30. CORTISONE [Suspect]
     Active Substance: CORTISONE
     Route: 065
  31. CORTISONE [Suspect]
     Active Substance: CORTISONE
     Route: 065
  32. CORTISONE [Suspect]
     Active Substance: CORTISONE
  33. DAUNORUBICIN [Suspect]
     Active Substance: DAUNORUBICIN
     Indication: Acute lymphocytic leukaemia
  34. DAUNORUBICIN [Suspect]
     Active Substance: DAUNORUBICIN
     Route: 065
  35. DAUNORUBICIN [Suspect]
     Active Substance: DAUNORUBICIN
     Route: 065
  36. DAUNORUBICIN [Suspect]
     Active Substance: DAUNORUBICIN
  37. ASPARAGINASE [Suspect]
     Active Substance: ASPARAGINASE
     Indication: Acute lymphocytic leukaemia
  38. ASPARAGINASE [Suspect]
     Active Substance: ASPARAGINASE
     Route: 065
  39. ASPARAGINASE [Suspect]
     Active Substance: ASPARAGINASE
     Route: 065
  40. ASPARAGINASE [Suspect]
     Active Substance: ASPARAGINASE
  41. CYTARABINE [Suspect]
     Active Substance: CYTARABINE
     Indication: Acute lymphocytic leukaemia
  42. CYTARABINE [Suspect]
     Active Substance: CYTARABINE
     Route: 065
  43. CYTARABINE [Suspect]
     Active Substance: CYTARABINE
     Route: 065
  44. CYTARABINE [Suspect]
     Active Substance: CYTARABINE
  45. THIOGUANINE [Suspect]
     Active Substance: THIOGUANINE
     Indication: Acute lymphocytic leukaemia
  46. THIOGUANINE [Suspect]
     Active Substance: THIOGUANINE
     Route: 065
  47. THIOGUANINE [Suspect]
     Active Substance: THIOGUANINE
     Route: 065
  48. THIOGUANINE [Suspect]
     Active Substance: THIOGUANINE

REACTIONS (5)
  - Glioblastoma multiforme [Fatal]
  - Nervous system disorder [Fatal]
  - Intracranial pressure increased [Fatal]
  - Seizure [Fatal]
  - Glioma [Fatal]
